FAERS Safety Report 4635603-2 (Version None)
Quarter: 2005Q2

REPORT INFORMATION
  Report Type: 
  Country: None (occurrence: None)
  Receive Date: 20050413
  Receipt Date: 20050401
  Transmission Date: 20051028
  Serious: Yes (Hospitalization)
  Sender: FDA-Public Use
  Company Number: KII-2005-0015710

PATIENT
  Age: 42 Year
  Sex: Female

DRUGS (2)
  1. HYDROMORPHONE HCL [Suspect]
     Indication: PAIN
     Dosage: ORAL
     Route: 048
  2. PROPOXYPHENE NAPSYLATE W/ ACETAMINOPHEN [Suspect]

REACTIONS (4)
  - INADEQUATE ANALGESIA [None]
  - MEDICATION ERROR [None]
  - SOMNOLENCE [None]
  - SUICIDAL IDEATION [None]
